FAERS Safety Report 21574734 (Version 2)
Quarter: 2022Q4

REPORT INFORMATION
  Report Type: Spontaneous
  Country: US (occurrence: US)
  Receive Date: 20221109
  Receipt Date: 20221206
  Transmission Date: 20230113
  Serious: Yes (Other)
  Sender: FDA-Public Use
  Company Number: US-NOVEN PHARMACEUTICALS, INC.-2022-NOV-US001041

PATIENT
  Age: 56 Year
  Sex: Female
  Weight: 54.422 kg

DRUGS (2)
  1. MINIVELLE [Suspect]
     Active Substance: ESTRADIOL
     Indication: Menopausal symptoms
     Dosage: 0.1MG, TWICE WEEKLY
     Route: 062
     Dates: start: 202210
  2. MINIVELLE [Suspect]
     Active Substance: ESTRADIOL
     Dosage: 0.1MG, TWICE WEEKLY
     Route: 062
     Dates: start: 202209, end: 202210

REACTIONS (4)
  - Muscle injury [Recovered/Resolved]
  - Product dose omission issue [Not Recovered/Not Resolved]
  - Device issue [Not Recovered/Not Resolved]
  - Product adhesion issue [Not Recovered/Not Resolved]

NARRATIVE: CASE EVENT DATE: 20220901
